FAERS Safety Report 9758633 (Version 1)
Quarter: 2013Q4

REPORT INFORMATION
  Report Type: Spontaneous
  Country: US (occurrence: None)
  Receive Date: 20131216
  Receipt Date: 20131216
  Transmission Date: 20140711
  Serious: Yes (Hospitalization)
  Sender: FDA-Public Use
  Company Number: RB-52739-2013

PATIENT
  Age: 27 Year
  Sex: Male

DRUGS (1)
  1. SUBOXONE [Suspect]
     Indication: DRUG DEPENDENCE
     Dosage: (SUBOXONE FILM; STARTED 4 YEARS AGO, DOSING DETAILS UNKNOWN; SELF TAPERING SUBLINGUAL)

REACTIONS (3)
  - Underdose [None]
  - Wrong technique in drug usage process [None]
  - Drug detoxification [None]
